FAERS Safety Report 20660852 (Version 1)
Quarter: 2022Q1

REPORT INFORMATION
  Report Type: Spontaneous
  Country: ES (occurrence: None)
  Receive Date: 20220331
  Receipt Date: 20220331
  Transmission Date: 20220423
  Serious: Yes (Hospitalization)
  Sender: FDA-Public Use
  Company Number: None

PATIENT
  Age: 72 Year
  Sex: Male

DRUGS (6)
  1. FUROSEMIDE [Interacting]
     Active Substance: FUROSEMIDE
     Indication: Cardiac failure
     Route: 042
     Dates: start: 20211202, end: 20211216
  2. AMPICILLIN SODIUM [Interacting]
     Active Substance: AMPICILLIN SODIUM
     Indication: Pneumonia aspiration
     Route: 042
     Dates: start: 20211209, end: 20211213
  3. AMOXICILLIN\CLAVULANIC ACID [Interacting]
     Active Substance: AMOXICILLIN\CLAVULANIC ACID
     Indication: Pneumonia aspiration
     Route: 042
     Dates: start: 20211201, end: 20211205
  4. GENTAMICIN [Interacting]
     Active Substance: GENTAMICIN
     Indication: Pneumonia aspiration
     Route: 042
     Dates: start: 20211209, end: 20211213
  5. ENALAPRIL MALEATE [Interacting]
     Active Substance: ENALAPRIL MALEATE
     Indication: Hypertension
     Route: 048
     Dates: start: 20211128, end: 20211219
  6. CEFTRIAXONE [Interacting]
     Active Substance: CEFTRIAXONE
     Indication: Pneumonia aspiration
     Route: 042
     Dates: start: 20211205, end: 20211209

REACTIONS (2)
  - Acute kidney injury [Not Recovered/Not Resolved]
  - Tubulointerstitial nephritis [Not Recovered/Not Resolved]

NARRATIVE: CASE EVENT DATE: 20211213
